FAERS Safety Report 5091982-6 (Version None)
Quarter: 2006Q3

REPORT INFORMATION
  Report Type: 
  Country: None (occurrence: None)
  Receive Date: 20060825
  Receipt Date: 20060810
  Transmission Date: 20061208
  Serious: Yes (Hospitalization)
  Sender: FDA-Public Use
  Company Number: ES200608002688

PATIENT
  Age: 79 Year
  Sex: Female

DRUGS (6)
  1. FORTEO [Suspect]
     Indication: OSTEOPOROSIS
     Dosage: 20 UG, DAILY (1/D), SUBCUTANEOUS
     Route: 058
     Dates: start: 20051001, end: 20060627
  2. FORTEO [Concomitant]
  3. LOBIVON          (NEBIVOLOL HYDROCHLORIDE) [Concomitant]
  4. CO VALS            (HYDROCHLOROTHIAZIDE, VALSARTAN) [Concomitant]
  5. DIGOXIN [Concomitant]
  6. OSVICAL D           (CALCIUM PIDOLATE, COLECALCIFEROL) [Concomitant]

REACTIONS (8)
  - ATRIAL FIBRILLATION [None]
  - BRONCHITIS [None]
  - DIZZINESS [None]
  - DYSPNOEA [None]
  - FATIGUE [None]
  - GASTRIC ULCER HAEMORRHAGE [None]
  - HYPOTENSION [None]
  - NASOPHARYNGITIS [None]
